FAERS Safety Report 10194321 (Version 4)
Quarter: 2014Q3

REPORT INFORMATION
  Report Type: Report from Study
  Country: DE (occurrence: DE)
  Receive Date: 20140526
  Receipt Date: 20140807
  Transmission Date: 20150326
  Serious: Yes (Hospitalization, Other)
  Sender: FDA-Public Use
  Company Number: DE-BIOGENIDEC-2014BI030761

PATIENT
  Age: 46 Year
  Sex: Female

DRUGS (6)
  1. OPHTALMIN [Concomitant]
     Route: 047
     Dates: start: 20140318, end: 20140408
  2. TYSABRI [Suspect]
     Active Substance: NATALIZUMAB
     Indication: RELAPSING-REMITTING MULTIPLE SCLEROSIS
     Route: 042
     Dates: start: 20140508
  3. OTRIVEN [Concomitant]
     Active Substance: XYLOMETAZOLINE HYDROCHLORIDE
     Route: 045
     Dates: start: 20140318, end: 20140325
  4. TYSABRI [Suspect]
     Active Substance: NATALIZUMAB
     Indication: RELAPSING-REMITTING MULTIPLE SCLEROSIS
     Route: 042
     Dates: start: 20090302, end: 20140220
  5. OXYTERACYCLIN AS [Concomitant]
     Dates: start: 20140318, end: 20140429
  6. ERYTHROMYCIN. [Concomitant]
     Active Substance: ERYTHROMYCIN
     Route: 048
     Dates: start: 20140318, end: 20140325

REACTIONS (2)
  - Dacryolith [Recovered/Resolved]
  - Dacryocystitis [Recovered/Resolved]

NARRATIVE: CASE EVENT DATE: 20140317
